FAERS Safety Report 4722010-7 (Version None)
Quarter: 2005Q3

REPORT INFORMATION
  Report Type: 
  Country: None (occurrence: None)
  Receive Date: 20050722
  Receipt Date: 20050714
  Transmission Date: 20060218
  Serious: Yes (Hospitalization)
  Sender: FDA-Public Use
  Company Number: US-SANOFI-SYNTHELABO-A03200502113

PATIENT
  Sex: Female

DRUGS (6)
  1. PLAVIX [Suspect]
     Indication: STENT PLACEMENT
     Route: 048
  2. ASPIRIN [Suspect]
     Indication: STENT PLACEMENT
     Route: 048
  3. LANOXIN [Concomitant]
     Dosage: UNK
     Route: 048
  4. MECLIZINE [Concomitant]
     Dosage: UNK
     Route: 048
  5. SYNTHROID [Concomitant]
     Dosage: UNK
     Route: 048
  6. MINITRAN [Concomitant]
     Dosage: UNK
     Route: 048

REACTIONS (2)
  - DIZZINESS [None]
  - NAUSEA [None]
